FAERS Safety Report 9395156 (Version 5)
Quarter: 2013Q3

REPORT INFORMATION
  Report Type: Spontaneous
  Country: GB (occurrence: None)
  Receive Date: 20130705
  Receipt Date: 20130807
  Transmission Date: 20140515
  Serious: Yes (Other)
  Sender: FDA-Public Use
  Company Number: AUR-APL-2013-05549

PATIENT
  Age: 58 Year
  Sex: Female
  Weight: 85.72 kg

DRUGS (8)
  1. SIMVASTATIN (SIMVASTATIN) [Suspect]
     Indication: BLOOD CHOLESTEROL INCREASED
     Route: 048
     Dates: start: 20120808, end: 20121212
  2. BETAHISTINE (BETAHISTINE) [Concomitant]
  3. FLUOXETINE (FLUOXETINE) [Concomitant]
  4. LANSOPRAZOLE (LANSOPRAZOLE) [Concomitant]
  5. LIVIAL (TIBOLONE) [Concomitant]
  6. MIRTAZAPINE (MIRTAZAPINE) [Concomitant]
  7. PARACETAMOL (PARACETAMOL) [Concomitant]
  8. THYROXINE (LEVOTHYROXINE SODIUM) [Concomitant]

REACTIONS (10)
  - Influenza like illness [None]
  - Malaise [None]
  - Swelling face [None]
  - Body temperature increased [None]
  - Malaise [None]
  - Drug ineffective [None]
  - Chest discomfort [None]
  - Dyspnoea [None]
  - Dysphonia [None]
  - Drug intolerance [None]
